FAERS Safety Report 21321709 (Version 1)
Quarter: 2022Q3

REPORT INFORMATION
  Report Type: Spontaneous
  Country: US (occurrence: US)
  Receive Date: 20220912
  Receipt Date: 20220912
  Transmission Date: 20221027
  Serious: Yes (Other)
  Sender: FDA-Public Use
  Company Number: US-SA-SAC20220909001585

PATIENT

DRUGS (1)
  1. ZANTAC [Suspect]
     Active Substance: RANITIDINE HYDROCHLORIDE
     Dosage: UNK,PRESCRIPTION ZANTAC FROM APPROXIMATELY 1980 TO 2010
     Route: 048
     Dates: start: 1980, end: 2010

REACTIONS (2)
  - Breast cancer [Unknown]
  - Thymus disorder [Unknown]
